FAERS Safety Report 6575960-3 (Version None)
Quarter: 2010Q1

REPORT INFORMATION
  Report Type: 
  Country: None (occurrence: None)
  Receive Date: 20100209
  Receipt Date: 20100201
  Transmission Date: 20100710
  Serious: No
  Sender: FDA-Public Use
  Company Number: US-B.I. PHARMACEUTICALS,INC./RIDGEFIELD-2010-BP-01263BP

PATIENT
  Sex: Male

DRUGS (8)
  1. SPIRIVA [Suspect]
     Indication: EMPHYSEMA
     Dosage: 18 MCG
     Route: 055
     Dates: start: 20090101
  2. SPIRIVA [Suspect]
     Indication: BRONCHITIS CHRONIC
  3. CITALOPRAM [Concomitant]
     Indication: DEPRESSION
  4. PROTONIX [Concomitant]
     Indication: DYSPEPSIA
  5. SIMVASTATIN [Concomitant]
     Indication: BLOOD CHOLESTEROL INCREASED
  6. ASPIRIN [Concomitant]
     Indication: PROPHYLAXIS
  7. CALCIUM [Concomitant]
     Indication: PROPHYLAXIS
  8. VITAMINS [Concomitant]
     Indication: PROPHYLAXIS

REACTIONS (2)
  - CORONARY ARTERY OCCLUSION [None]
  - PRODUCTIVE COUGH [None]
